FAERS Safety Report 9274832 (Version 1)
Quarter: 2013Q2

REPORT INFORMATION
  Report Type: Report from Study
  Country: DE (occurrence: DE)
  Receive Date: 20130507
  Receipt Date: 20130507
  Transmission Date: 20140414
  Serious: Yes (Hospitalization)
  Sender: FDA-Public Use
  Company Number: DE-ROCHE-1221474

PATIENT
  Sex: Female
  Weight: 66 kg

DRUGS (1)
  1. AVASTIN [Suspect]
     Indication: BREAST CANCER
     Route: 042
     Dates: start: 20130326

REACTIONS (2)
  - Hypertension [Recovered/Resolved]
  - Drug resistance [Recovered/Resolved]
